FAERS Safety Report 17294315 (Version 1)
Quarter: 2020Q1

REPORT INFORMATION
  Report Type: Spontaneous
  Country: ES (occurrence: ES)
  Receive Date: 20200121
  Receipt Date: 20200121
  Transmission Date: 20200409
  Serious: Yes (Other)
  Sender: FDA-Public Use
  Company Number: ES-PFIZER INC-2019293871

PATIENT
  Age: 29 Year
  Sex: Female

DRUGS (9)
  1. LEVETIRACETAM. [Suspect]
     Active Substance: LEVETIRACETAM
     Indication: EPILEPSY
     Dosage: 1000MG IN AM AND 750MG IN PM, (2X/DAY)
     Dates: start: 20180411, end: 20190610
  2. LEVETIRACETAM. [Suspect]
     Active Substance: LEVETIRACETAM
     Indication: EPILEPSY
     Dosage: UNK
     Route: 048
     Dates: start: 20190328, end: 20190611
  3. CLOBAZAM. [Concomitant]
     Active Substance: CLOBAZAM
     Indication: EPILEPSY
     Dosage: 20 MG, DAILY(10MG 2X/DAY)
     Route: 048
  4. BRIVIACT [Suspect]
     Active Substance: BRIVARACETAM
     Dosage: 200 MG, DAILY (100MG 2X/DAY)
     Route: 048
     Dates: start: 20191004, end: 20191016
  5. VIMPAT [Suspect]
     Active Substance: LACOSAMIDE
     Indication: STATUS EPILEPTICUS
     Dosage: 400 MG, DAILY (200MG 2X/DAY)
     Route: 042
     Dates: start: 20191004, end: 20191016
  6. LEVETIRACETAM. [Suspect]
     Active Substance: LEVETIRACETAM
     Dosage: UNK
     Route: 048
     Dates: start: 20190611, end: 201906
  7. BRIVIACT [Suspect]
     Active Substance: BRIVARACETAM
     Dosage: 50 MG, DAILY (25MG 2X/DAY)
     Dates: start: 201909
  8. ZONISAMIDE. [Concomitant]
     Active Substance: ZONISAMIDE
     Indication: EPILEPSY
     Dosage: UNK
  9. BRIVIACT [Suspect]
     Active Substance: BRIVARACETAM
     Indication: STATUS EPILEPTICUS
     Dosage: 200 MG, DAILY (100MG 2X/DAY)
     Dates: start: 201905

REACTIONS (4)
  - Behaviour disorder [Unknown]
  - Illusion [Recovered/Resolved]
  - Hallucination, visual [Recovered/Resolved]
  - Drug ineffective [Unknown]

NARRATIVE: CASE EVENT DATE: 201903
